FAERS Safety Report 12832413 (Version 1)
Quarter: 2016Q4

REPORT INFORMATION
  Report Type: Spontaneous
  Country: US (occurrence: US)
  Receive Date: 20161010
  Receipt Date: 20161010
  Transmission Date: 20170207
  Serious: No
  Sender: FDA-Public Use
  Company Number: US-JAZZ-2016-US-013117

PATIENT
  Sex: Female

DRUGS (23)
  1. XYREM [Suspect]
     Active Substance: SODIUM OXYBATE
     Dosage: 2.25 G, BID
     Route: 048
     Dates: start: 201006, end: 201006
  2. XYREM [Suspect]
     Active Substance: SODIUM OXYBATE
     Dosage: 4.5 G, BID
     Route: 048
     Dates: start: 201404
  3. ALLEGRA ALLERGY [Concomitant]
     Active Substance: FEXOFENADINE HYDROCHLORIDE
  4. XYREM [Suspect]
     Active Substance: SODIUM OXYBATE
     Indication: NARCOLEPSY
     Dosage: 2.25 G, BID
     Route: 048
     Dates: start: 200504, end: 200504
  5. MULTIVITAMIN [Concomitant]
     Active Substance: VITAMINS
  6. VITAMIN D3 [Concomitant]
     Active Substance: CHOLECALCIFEROL
  7. BUPROPION HCL [Concomitant]
     Active Substance: BUPROPION HYDROCHLORIDE
  8. DICLOFENAC POTASSIUM. [Concomitant]
     Active Substance: DICLOFENAC POTASSIUM
  9. CLONAZEPAM. [Concomitant]
     Active Substance: CLONAZEPAM
  10. XYREM [Suspect]
     Active Substance: SODIUM OXYBATE
     Dosage: DOSE ADJUSTMENTS
     Route: 048
     Dates: start: 200504, end: 200811
  11. XYREM [Suspect]
     Active Substance: SODIUM OXYBATE
     Dosage: 4.5 G, BID
     Route: 048
     Dates: start: 200811, end: 2009
  12. LEVOTHYROXINE. [Concomitant]
     Active Substance: LEVOTHYROXINE
  13. NALTREXONE [Concomitant]
     Active Substance: NALTREXONE
  14. TRAMADOL HCL [Concomitant]
     Active Substance: TRAMADOL HYDROCHLORIDE
  15. VITAMIN B12 [Concomitant]
     Active Substance: CYANOCOBALAMIN
  16. XYREM [Suspect]
     Active Substance: SODIUM OXYBATE
     Dosage: 4.5 G, BID
     Route: 048
     Dates: start: 201102, end: 2013
  17. XYREM [Suspect]
     Active Substance: SODIUM OXYBATE
     Dosage: DOSE ADJUSTMENTS
     Route: 048
     Dates: start: 201006, end: 201102
  18. SEROQUEL [Concomitant]
     Active Substance: QUETIAPINE FUMARATE
  19. AMOXICILLIN. [Concomitant]
     Active Substance: AMOXICILLIN
  20. PRISTIQ EXTENDED-RELEASE [Concomitant]
     Active Substance: DESVENLAFAXINE SUCCINATE
  21. LYRICA [Concomitant]
     Active Substance: PREGABALIN
  22. ABILIFY [Concomitant]
     Active Substance: ARIPIPRAZOLE
  23. MIRTAZAPINE. [Concomitant]
     Active Substance: MIRTAZAPINE

REACTIONS (2)
  - Somnolence [Not Recovered/Not Resolved]
  - Impaired driving ability [Not Recovered/Not Resolved]
